FAERS Safety Report 23058543 (Version 1)
Quarter: 2023Q4

REPORT INFORMATION
  Report Type: Spontaneous
  Country: US (occurrence: None)
  Receive Date: 20231012
  Receipt Date: 20231012
  Transmission Date: 20240109
  Serious: No
  Sender: FDA-Public Use
  Company Number: 2023A228920

PATIENT
  Sex: Male

DRUGS (1)
  1. LOKELMA [Suspect]
     Active Substance: SODIUM ZIRCONIUM CYCLOSILICATE
     Dosage: TWO IN THE MORNING, TWO AT NIGHT.
     Route: 048

REACTIONS (3)
  - Blood potassium increased [Unknown]
  - Weight increased [Unknown]
  - Blood creatinine increased [Unknown]
